FAERS Safety Report 7676719-6 (Version None)
Quarter: 2011Q3

REPORT INFORMATION
  Report Type: 
  Country: None (occurrence: None)
  Receive Date: 20110811
  Receipt Date: 20110803
  Transmission Date: 20111222
  Serious: Yes (Hospitalization)
  Sender: FDA-Public Use
  Company Number: US-BRACCO-006592

PATIENT
  Sex: Male

DRUGS (2)
  1. MULTIHANCE [Suspect]
     Indication: NUCLEAR MAGNETIC RESONANCE IMAGING WHOLE BODY
  2. MULTIHANCE [Suspect]
     Indication: MULTIPLE MYELOMA

REACTIONS (3)
  - DYSPHONIA [None]
  - SPEECH DISORDER [None]
  - RESPIRATORY ARREST [None]
